FAERS Safety Report 7055519-4 (Version None)
Quarter: 2010Q4

REPORT INFORMATION
  Report Type: 
  Country: None (occurrence: None)
  Receive Date: 20101021
  Receipt Date: 20101018
  Transmission Date: 20110411
  Serious: Yes (Other)
  Sender: FDA-Public Use
  Company Number: US-PFIZER INC-2010132289

PATIENT
  Sex: Male
  Weight: 72.6 kg

DRUGS (5)
  1. CELEBREX [Suspect]
     Indication: ARTHRITIS
     Dosage: 200 MG, UNK
     Route: 048
     Dates: start: 20090101
  2. CELEBREX [Suspect]
     Indication: MUSCULOSKELETAL DISCOMFORT
  3. PACERONE [Concomitant]
     Indication: CARDIAC FIBRILLATION
     Dosage: 200 MG, EVERY THREE DAYS
     Route: 048
  4. TAMSULOSIN HYDROCHLORIDE [Concomitant]
     Indication: PROSTATOMEGALY
     Dosage: 0.4 MG, 1X/DAY
     Route: 048
     Dates: start: 20080101
  5. ALLOPURINOL [Concomitant]
     Indication: GOUT
     Dosage: 150 MG, 1X/DAY
     Route: 048
     Dates: start: 20100101

REACTIONS (4)
  - DRUG ADMINISTRATION ERROR [None]
  - FOOT FRACTURE [None]
  - INFLAMMATION [None]
  - TINNITUS [None]
